FAERS Safety Report 13226400 (Version 1)
Quarter: 2017Q1

REPORT INFORMATION
  Report Type: Spontaneous
  Country: US (occurrence: US)
  Receive Date: 20170213
  Receipt Date: 20170213
  Transmission Date: 20170428
  Serious: Yes (Hospitalization, Other)
  Sender: FDA-Public Use
  Company Number: US-PFIZER INC-2017063477

PATIENT
  Age: 81 Year
  Sex: Female
  Weight: 77.11 kg

DRUGS (4)
  1. LOVASTATIN. [Concomitant]
     Active Substance: LOVASTATIN
     Dosage: 100MG, ONE AT NIGHT AT BEDTIME
  2. OMEPRAZOLE. [Concomitant]
     Active Substance: OMEPRAZOLE
     Dosage: ONE IN THE MORNING
  3. DILANTIN [Suspect]
     Active Substance: PHENYTOIN
     Indication: SEIZURE
     Dosage: THREE 100MG A DAY
     Dates: start: 1975
  4. LYRICA [Suspect]
     Active Substance: PREGABALIN

REACTIONS (6)
  - Fall [Unknown]
  - Abasia [Unknown]
  - Fracture [Unknown]
  - Upper limb fracture [Unknown]
  - Drug ineffective [Unknown]
  - Femur fracture [Unknown]

NARRATIVE: CASE EVENT DATE: 20160524
